FAERS Safety Report 6804118-5 (Version None)
Quarter: 2010Q2

REPORT INFORMATION
  Report Type: 
  Country: None (occurrence: None)
  Receive Date: 20100628
  Receipt Date: 20071210
  Transmission Date: 20101027
  Serious: No
  Sender: FDA-Public Use
  Company Number: US-PFIZER INC-2006007136

PATIENT
  Sex: Female
  Weight: 63.5 kg

DRUGS (3)
  1. GENOTROPIN [Suspect]
     Indication: GROWTH HORMONE DEFICIENCY
     Route: 065
     Dates: start: 20041125
  2. GENOTROPIN [Suspect]
     Dosage: DAILY
     Route: 065
  3. SYNTHROID [Concomitant]
     Indication: THYROID DISORDER
     Route: 065

REACTIONS (2)
  - ARTHRALGIA [None]
  - JOINT SWELLING [None]
